FAERS Safety Report 5466017-3 (Version None)
Quarter: 2007Q3

REPORT INFORMATION
  Report Type: 
  Country: None (occurrence: None)
  Receive Date: 20070924
  Receipt Date: 20070913
  Transmission Date: 20080115
  Serious: No
  Sender: FDA-Public Use
  Company Number: US-BOEHRINGER INGELHEIM PHARMACEUTICALS, INC.-2007-BP-21010BP

PATIENT
  Sex: Female

DRUGS (1)
  1. SPIRIVA [Suspect]
     Indication: BRONCHITIS
     Route: 055
     Dates: start: 20070501

REACTIONS (4)
  - CONSTIPATION [None]
  - EYE IRRITATION [None]
  - EYE PAIN [None]
  - THERAPEUTIC RESPONSE UNEXPECTED [None]
